FAERS Safety Report 4834951-0 (Version None)
Quarter: 2005Q4

REPORT INFORMATION
  Report Type: 
  Country: None (occurrence: None)
  Receive Date: 20051122
  Receipt Date: 20051115
  Transmission Date: 20060501
  Serious: Yes (Other)
  Sender: FDA-Public Use
  Company Number: IE-JNJFOC-20051001808

PATIENT
  Age: 84 Year
  Sex: Male

DRUGS (8)
  1. REMINYL XR [Suspect]
     Indication: COGNITIVE DISORDER
     Route: 048
     Dates: start: 20050819, end: 20050831
  2. ACETYLSALICYLIC ACID [Concomitant]
  3. LIPOSTAT 10% [Concomitant]
  4. COVERSYL [Concomitant]
  5. TRENTAL [Concomitant]
  6. ELANTAN [Concomitant]
  7. STILNOCT [Concomitant]
  8. SERENACE [Concomitant]

REACTIONS (2)
  - ABDOMINAL PAIN [None]
  - INTESTINAL PERFORATION [None]
